FAERS Safety Report 19563931 (Version 3)
Quarter: 2021Q3

REPORT INFORMATION
  Report Type: Spontaneous
  Country: DE (occurrence: DE)
  Receive Date: 20210714
  Receipt Date: 20210922
  Transmission Date: 20211014
  Serious: Yes (Hospitalization, Other)
  Sender: FDA-Public Use
  Company Number: DE-PFIZER INC-2021803812

PATIENT
  Age: 48 Year
  Sex: Female
  Weight: 74 kg

DRUGS (13)
  1. L?THYROX [Concomitant]
     Active Substance: LEVOTHYROXINE SODIUM
     Indication: ADRENALECTOMY
  2. ASTONIN H [Concomitant]
     Active Substance: FLUDROCORTISONE
     Indication: ADRENALECTOMY
  3. FEMOSTON [Concomitant]
     Active Substance: DYDROGESTERONE\ESTRADIOL
     Indication: ADRENALECTOMY
  4. ASPIRIN. [Concomitant]
     Active Substance: ASPIRIN
     Indication: PERIPHERAL ARTERIAL OCCLUSIVE DISEASE
     Dosage: 100, 1X/DAY
     Dates: start: 2007
  5. VIGANTOLETTEN [Concomitant]
     Active Substance: CHOLECALCIFEROL
     Dosage: 1000 IU, DAILY
  6. ASTONIN H [Concomitant]
     Active Substance: FLUDROCORTISONE
     Indication: HYPOPHYSECTOMY
     Dosage: 0.1, 1X/DAY
     Dates: start: 2000
  7. HYDROCORTISON [HYDROCORTISONE] [Concomitant]
     Indication: HYPOPHYSECTOMY
     Dosage: 10 ? 10, 2.5 MG, 3X/DAY
     Dates: start: 2000
  8. FEMOSTON [Concomitant]
     Active Substance: DYDROGESTERONE\ESTRADIOL
     Indication: HYPOPHYSECTOMY
     Dosage: 2/10, 1X/DAY
     Dates: start: 2000
  9. GENOTROPIN [Suspect]
     Active Substance: SOMATROPIN
     Indication: ADRENALECTOMY
  10. GENOTROPIN [Suspect]
     Active Substance: SOMATROPIN
     Indication: HYPOPHYSECTOMY
     Dosage: 0.6 MG
     Dates: start: 2000, end: 201909
  11. HYDROCORTISON [HYDROCORTISONE] [Concomitant]
     Indication: ADRENALECTOMY
  12. L?THYROX [Concomitant]
     Active Substance: LEVOTHYROXINE SODIUM
     Indication: HYPOPHYSECTOMY
     Dosage: 137.5 MG, AS NEEDED
     Dates: start: 2000
  13. CORTISONE [Suspect]
     Active Substance: CORTISONE
     Dosage: UNK

REACTIONS (2)
  - Gastric cancer [Recovered/Resolved]
  - Weight increased [Not Recovered/Not Resolved]

NARRATIVE: CASE EVENT DATE: 201909
